FAERS Safety Report 16310602 (Version 2)
Quarter: 2019Q3

REPORT INFORMATION
  Report Type: Spontaneous
  Country: US (occurrence: US)
  Receive Date: 20190514
  Receipt Date: 20190912
  Transmission Date: 20191004
  Serious: Yes (Other)
  Sender: FDA-Public Use
  Company Number: US-ASTRAZENECA-2019SE66810

PATIENT
  Age: 23971 Day
  Sex: Female
  Weight: 77.1 kg

DRUGS (88)
  1. PANTOPRAZOLE [Suspect]
     Active Substance: PANTOPRAZOLE
     Indication: DYSPEPSIA
     Dosage: GENERIC
     Route: 065
     Dates: start: 20160503
  2. CLONIDINE. [Concomitant]
     Active Substance: CLONIDINE
  3. CLONAZEPAM. [Concomitant]
     Active Substance: CLONAZEPAM
  4. NASONEX [Concomitant]
     Active Substance: MOMETASONE FUROATE
  5. TRIMOX [Concomitant]
     Active Substance: AMOXICILLIN
  6. AMOXICILLINE [Concomitant]
     Active Substance: AMOXICILLIN
  7. BENZONATATE. [Concomitant]
     Active Substance: BENZONATATE
  8. VIOXX [Concomitant]
     Active Substance: ROFECOXIB
  9. GUAIFENEX [Concomitant]
     Active Substance: GUAIFENESIN\PHENYLEPHRINE\PHENYLPROPANOLAMINE
  10. AMBIEN [Concomitant]
     Active Substance: ZOLPIDEM TARTRATE
  11. MUCINEX [Concomitant]
     Active Substance: GUAIFENESIN
  12. METRONIDAZOLE. [Concomitant]
     Active Substance: METRONIDAZOLE
  13. HYDROCODONE [Concomitant]
     Active Substance: HYDROCODONE
  14. SPIRIVA [Concomitant]
     Active Substance: TIOTROPIUM BROMIDE MONOHYDRATE
  15. TUMS [Concomitant]
     Active Substance: CALCIUM CARBONATE
  16. VALSARTAN. [Concomitant]
     Active Substance: VALSARTAN
  17. NEXIUM [Suspect]
     Active Substance: ESOMEPRAZOLE MAGNESIUM
     Indication: DYSPEPSIA
     Dosage: GENERIC
     Route: 065
     Dates: start: 20160107, end: 20160502
  18. NEXIUM [Suspect]
     Active Substance: ESOMEPRAZOLE MAGNESIUM
     Indication: DYSPEPSIA
     Route: 048
     Dates: start: 20090223
  19. NEXIUM [Suspect]
     Active Substance: ESOMEPRAZOLE MAGNESIUM
     Indication: DYSPEPSIA
     Route: 048
     Dates: start: 20100124
  20. NEXIUM [Suspect]
     Active Substance: ESOMEPRAZOLE MAGNESIUM
     Indication: DYSPEPSIA
     Route: 048
     Dates: start: 20150323
  21. METFORMIN [Concomitant]
     Active Substance: METFORMIN HYDROCHLORIDE
  22. CYCLOBENZAPRINE. [Concomitant]
     Active Substance: CYCLOBENZAPRINE
  23. TUSSIONEX PENNKINETIC [Concomitant]
     Active Substance: CHLORPHENIRAMINE\HYDROCODONE
  24. LOSARTAN. [Concomitant]
     Active Substance: LOSARTAN
  25. CALCITRIOL. [Concomitant]
     Active Substance: CALCITRIOL
  26. LIDOCAIN [Concomitant]
     Active Substance: LIDOCAINE
  27. PREDNISONE. [Concomitant]
     Active Substance: PREDNISONE
  28. LORTAB [Concomitant]
     Active Substance: ACETAMINOPHEN\HYDROCODONE BITARTRATE
  29. NEXIUM [Suspect]
     Active Substance: ESOMEPRAZOLE MAGNESIUM
     Indication: DYSPEPSIA
     Route: 048
     Dates: start: 20020202, end: 20150304
  30. NEXIUM [Suspect]
     Active Substance: ESOMEPRAZOLE MAGNESIUM
     Indication: DYSPEPSIA
     Route: 048
     Dates: start: 20100921
  31. DIAZEPAM. [Concomitant]
     Active Substance: DIAZEPAM
  32. ZITHROMAX [Concomitant]
     Active Substance: AZITHROMYCIN DIHYDRATE
  33. TRAMADOL. [Concomitant]
     Active Substance: TRAMADOL
  34. DIOVAN [Concomitant]
     Active Substance: VALSARTAN
  35. ALPHAGAN P [Concomitant]
     Active Substance: BRIMONIDINE TARTRATE
  36. METHYLPREDNISOLONE. [Concomitant]
     Active Substance: METHYLPREDNISOLONE
  37. PRILOSEC [Suspect]
     Active Substance: OMEPRAZOLE MAGNESIUM
     Indication: DYSPEPSIA
     Dosage: GENERIC
     Route: 065
     Dates: start: 20041014, end: 20041114
  38. ULTRAM [Concomitant]
     Active Substance: TRAMADOL HYDROCHLORIDE
  39. TIAZAC [Concomitant]
     Active Substance: DILTIAZEM HYDROCHLORIDE
  40. DURAHIST [Concomitant]
  41. COSOPT [Concomitant]
     Active Substance: DORZOLAMIDE HYDROCHLORIDE\TIMOLOL MALEATE
  42. LUMIGAN [Concomitant]
     Active Substance: BIMATOPROST
  43. SYNTHROID [Concomitant]
     Active Substance: LEVOTHYROXINE SODIUM
  44. PROAIR HFA [Concomitant]
     Active Substance: ALBUTEROL SULFATE
  45. ATORVASTATIN [Concomitant]
     Active Substance: ATORVASTATIN
  46. DOXYCYCLINE. [Concomitant]
     Active Substance: DOXYCYCLINE
  47. VITAMIN D [Concomitant]
     Active Substance: VITAMIN D NOS
  48. SINGULAIR [Concomitant]
     Active Substance: MONTELUKAST SODIUM
  49. OXYCODONE/ACETAMINOPHEN [Concomitant]
     Active Substance: ACETAMINOPHEN\OXYCODONE HYDROCHLORIDE
  50. NEXIUM [Suspect]
     Active Substance: ESOMEPRAZOLE MAGNESIUM
     Indication: DYSPEPSIA
     Route: 048
  51. PRILOSEC [Suspect]
     Active Substance: OMEPRAZOLE MAGNESIUM
     Indication: DYSPEPSIA
     Route: 048
     Dates: start: 20000412, end: 20010829
  52. AMOXIL [Concomitant]
     Active Substance: AMOXICILLIN
  53. PAROXETINE. [Concomitant]
     Active Substance: PAROXETINE
  54. PHENTERMINE. [Concomitant]
     Active Substance: PHENTERMINE
  55. VALSARTAN. [Concomitant]
     Active Substance: VALSARTAN
  56. AZITHROMYCIN ANHYDROUS. [Concomitant]
     Active Substance: AZITHROMYCIN ANHYDROUS
  57. NEXIUM [Suspect]
     Active Substance: ESOMEPRAZOLE MAGNESIUM
     Indication: DYSPEPSIA
     Route: 048
     Dates: start: 20090720
  58. GLIMEPIRIDE. [Concomitant]
     Active Substance: GLIMEPIRIDE
  59. LEVOTHYROXINE. [Concomitant]
     Active Substance: LEVOTHYROXINE
  60. DULERA [Concomitant]
     Active Substance: FORMOTEROL FUMARATE DIHYDRATE\MOMETASONE FUROATE
  61. ZIAC [Concomitant]
     Active Substance: BISOPROLOL FUMARATE\HYDROCHLOROTHIAZIDE
  62. CELEXA [Concomitant]
     Active Substance: CITALOPRAM HYDROBROMIDE
  63. TAZTIA XT [Concomitant]
     Active Substance: DILTIAZEM HYDROCHLORIDE
  64. PROMETHAZINE [Concomitant]
     Active Substance: PROMETHAZINE HYDROCHLORIDE
  65. FLONASE [Concomitant]
     Active Substance: FLUTICASONE PROPIONATE
  66. CEPHALEXIN. [Concomitant]
     Active Substance: CEPHALEXIN
  67. PREMARIN [Concomitant]
     Active Substance: ESTROGENS, CONJUGATED
  68. CIPRO [Concomitant]
     Active Substance: CIPROFLOXACIN HYDROCHLORIDE
  69. PAXIL [Concomitant]
     Active Substance: PAROXETINE HYDROCHLORIDE
  70. ZOLPIDEM TARTRATE. [Concomitant]
     Active Substance: ZOLPIDEM TARTRATE
  71. MECLIZINE [Concomitant]
     Active Substance: MECLIZINE HYDROCHLORIDE
  72. LEVAQUIN [Concomitant]
     Active Substance: LEVOFLOXACIN
  73. BYSTOLIC [Concomitant]
     Active Substance: NEBIVOLOL HYDROCHLORIDE
  74. METHOCARBAMOL. [Concomitant]
     Active Substance: METHOCARBAMOL
  75. FLUZONE [Concomitant]
     Active Substance: INFLUENZA A VIRUS A/CALIFORNIA/7/2009 X-179A (H1N1) ANTIGEN (FORMALDEHYDE INACTIVATED)\INFLUENZA A VIRUS A/VICTORIA/210/2009 X-187 (H3N2) ANTIGEN (FORMALDEHYDE INACTIVATED)\INFLUENZA B VIRUS B/BRISBANE/60/2008 ANTIGEN (FORMALDEHYDE INACTIVATED)
  76. RANITIDINE. [Concomitant]
     Active Substance: RANITIDINE
  77. KLOR-CON [Concomitant]
     Active Substance: POTASSIUM CHLORIDE
  78. CIPROFLOXACIN. [Concomitant]
     Active Substance: CIPROFLOXACIN
  79. CLARITIN [Concomitant]
     Active Substance: LORATADINE
  80. FLUTICASONE. [Concomitant]
     Active Substance: FLUTICASONE
  81. MEPERIDINE [Concomitant]
     Active Substance: MEPERIDINE
  82. TRIAMCINOLONE [Concomitant]
     Active Substance: TRIAMCINOLONE
  83. SPIRONOLACTONE. [Concomitant]
     Active Substance: SPIRONOLACTONE
  84. NITROFURANTOIN. [Concomitant]
     Active Substance: NITROFURANTOIN
  85. GABAPENTIN. [Concomitant]
     Active Substance: GABAPENTIN
  86. ASPIRINE [Concomitant]
     Active Substance: ASPIRIN
  87. MOBIC [Concomitant]
     Active Substance: MELOXICAM
  88. TRAMADOL. [Concomitant]
     Active Substance: TRAMADOL

REACTIONS (1)
  - Chronic kidney disease [Not Recovered/Not Resolved]

NARRATIVE: CASE EVENT DATE: 20110526
